FAERS Safety Report 15431827 (Version 1)
Quarter: 2018Q3

REPORT INFORMATION
  Report Type: Spontaneous
  Country: TW (occurrence: TW)
  Receive Date: 20180926
  Receipt Date: 20180926
  Transmission Date: 20181010
  Serious: Yes (Other)
  Sender: FDA-Public Use
  Company Number: TW-MYLANLABS-2018M1068478

PATIENT
  Age: 52 Year
  Sex: Male
  Weight: 50 kg

DRUGS (3)
  1. ETOPOSIDE. [Suspect]
     Active Substance: ETOPOSIDE
     Indication: SQUAMOUS CELL CARCINOMA OF HEAD AND NECK
     Dosage: 40MG/M2 ON DAY 1 AND DAY 2 EVERY 3 WEEKS
     Route: 065
  2. IFOSFAMIDE. [Suspect]
     Active Substance: IFOSFAMIDE
     Indication: SQUAMOUS CELL CARCINOMA OF HEAD AND NECK
     Dosage: 1500MG/M2 ON DAY 1 AND DAY 2 EVERY 3 WEEKS
     Route: 065
  3. NIVOLUMAB [Suspect]
     Active Substance: NIVOLUMAB
     Indication: SQUAMOUS CELL CARCINOMA OF HEAD AND NECK
     Dosage: 2 MG/KG (TOTAL DOSE: 100MG) ON DAY 1 EVERY 3 WEEKS
     Route: 065

REACTIONS (5)
  - Proteinuria [Unknown]
  - Off label use [Recovering/Resolving]
  - Acute kidney injury [Recovering/Resolving]
  - Haematuria [Unknown]
  - Glycosuria [Unknown]
